FAERS Safety Report 17187470 (Version 1)
Quarter: 2019Q4

REPORT INFORMATION
  Report Type: Spontaneous
  Country: GB (occurrence: GB)
  Receive Date: 20191220
  Receipt Date: 20191220
  Transmission Date: 20200122
  Serious: Yes (Disabling)
  Sender: FDA-Public Use
  Company Number: GB-AUROBINDO-AUR-APL-2019-106074

PATIENT
  Age: 45 Year
  Sex: Female
  Weight: 70 kg

DRUGS (2)
  1. FLUCLOXACILLIN [Concomitant]
     Active Substance: FLUCLOXACILLIN
     Indication: PRODUCT USED FOR UNKNOWN INDICATION
     Dosage: 4 DOSAGE FORM, ONCE A DAY
     Route: 065
     Dates: start: 20190902
  2. RAMIPRIL CAPSULE [Suspect]
     Active Substance: RAMIPRIL
     Indication: RENAL DISORDER
     Dosage: 2.5 MILLIGRAM, ONCE A DAY (TO HELP PREVENT KIDNEY DET...)
     Route: 065
     Dates: start: 20190902

REACTIONS (1)
  - Vision blurred [Recovered/Resolved]
